FAERS Safety Report 7137877-5 (Version None)
Quarter: 2010Q4

REPORT INFORMATION
  Report Type: 
  Country: None (occurrence: None)
  Receive Date: 20101206
  Receipt Date: 20101129
  Transmission Date: 20110411
  Serious: Yes (Death, Hospitalization, Other)
  Sender: FDA-Public Use
  Company Number: US-AMGEN-QUU397832

PATIENT

DRUGS (15)
  1. NPLATE [Suspect]
     Indication: IDIOPATHIC THROMBOCYTOPENIC PURPURA
     Dosage: 2 A?G/KG, QWK
     Route: 058
     Dates: start: 20081106, end: 20100119
  2. NPLATE [Suspect]
     Dates: start: 20081106, end: 20100119
  3. CORTICOSTEROID NOS [Concomitant]
     Dosage: UNK UNK, UNK
     Dates: start: 20060101
  4. ISOSORBIDE MONONITRATE [Concomitant]
     Dosage: 60 MG, QD
     Dates: start: 20091001
  5. FUROSEMIDE [Concomitant]
  6. ASPIRIN [Concomitant]
  7. PREGABALIN [Concomitant]
  8. PREDNISONE [Concomitant]
  9. ATORVASTATIN CALCIUM [Concomitant]
  10. RANOLAZINE [Concomitant]
  11. GLYCERYL TRINITRATE [Concomitant]
  12. CARVEDILOL [Concomitant]
  13. SENNA CONCENTRATE [Concomitant]
  14. LISINOPRIL [Concomitant]
  15. FOLIC ACID [Concomitant]

REACTIONS (7)
  - ACUTE MYOCARDIAL INFARCTION [None]
  - ANGINA UNSTABLE [None]
  - ATRIAL FIBRILLATION [None]
  - CARDIAC FAILURE CONGESTIVE [None]
  - DEATH [None]
  - SKIN CANCER [None]
  - TRANSIENT ISCHAEMIC ATTACK [None]
